FAERS Safety Report 24291287 (Version 1)
Quarter: 2024Q3

REPORT INFORMATION
  Report Type: Spontaneous
  Country: US (occurrence: None)
  Receive Date: 20240906
  Receipt Date: 20240906
  Transmission Date: 20241016
  Serious: No
  Sender: DOMPE FARMACEUTICI
  Company Number: US-FARMAPROD-202308-2298

PATIENT
  Sex: Female

DRUGS (8)
  1. OXERVATE [Suspect]
     Active Substance: CENEGERMIN-BKBJ
     Indication: Neurotrophic keratopathy
     Route: 047
     Dates: start: 20230725
  2. CROMOLYN SODIUM [Concomitant]
     Active Substance: CROMOLYN SODIUM
     Dosage: CONCENTRATE, ORAL.
     Route: 048
  3. VIGAMOX [Concomitant]
     Active Substance: MOXIFLOXACIN HYDROCHLORIDE
  4. ARTIFICIAL TEARS [Concomitant]
     Dosage: 0.1%-0.3%
  5. VITAMIN B12 [Concomitant]
     Active Substance: CYANOCOBALAMIN
  6. ASPIRIN [Concomitant]
     Active Substance: ASPIRIN
  7. LOSARTAN POTASSIUM [Concomitant]
     Active Substance: LOSARTAN POTASSIUM
  8. SIMVASTATIN [Concomitant]
     Active Substance: SIMVASTATIN

REACTIONS (2)
  - Eye pain [Unknown]
  - Periorbital swelling [Unknown]
